FAERS Safety Report 24722316 (Version 1)
Quarter: 2024Q4

REPORT INFORMATION
  Report Type: Spontaneous
  Country: CA (occurrence: CA)
  Receive Date: 20241211
  Receipt Date: 20241211
  Transmission Date: 20250115
  Serious: Yes (Life-Threatening, Hospitalization, Other)
  Sender: ORGANON
  Company Number: CA-ORGANON-O2412CAN000817

PATIENT
  Age: 15 Year
  Sex: Female
  Weight: 54 kg

DRUGS (13)
  1. REMERON [Suspect]
     Active Substance: MIRTAZAPINE
     Indication: Product used for unknown indication
     Dosage: UNK
  2. AMLODIPINE [Suspect]
     Active Substance: AMLODIPINE BESYLATE
     Indication: Product used for unknown indication
     Dosage: UNK
     Route: 065
  3. CANDESARTAN CILEXETIL [Suspect]
     Active Substance: CANDESARTAN CILEXETIL
     Indication: Product used for unknown indication
     Dosage: UNK
  4. FLUOXETINE [Suspect]
     Active Substance: FLUOXETINE HYDROCHLORIDE
     Dosage: UNK
  5. HYDROCHLOROTHIAZIDE [Suspect]
     Active Substance: HYDROCHLOROTHIAZIDE
     Indication: Product used for unknown indication
     Dosage: UNK
  6. LANSOPRAZOLE [Suspect]
     Active Substance: LANSOPRAZOLE
     Indication: Product used for unknown indication
     Dosage: UNK
  7. LORAZEPAM [Suspect]
     Active Substance: LORAZEPAM
     Dosage: UNK
     Route: 065
  8. EPINEPHRINE [Concomitant]
     Active Substance: EPINEPHRINE
     Dosage: UNK
  9. DEXTROSE [Concomitant]
     Active Substance: DEXTROSE MONOHYDRATE
     Dosage: UNK
  10. INSULIN NOS [Concomitant]
     Active Substance: INSULIN NOS
     Dosage: UNK
  11. NOREPINEPHRINE [Concomitant]
     Active Substance: NOREPINEPHRINE\NOREPINEPHRINE BITARTRATE
     Dosage: UNK
  12. VASOPRESSIN [Concomitant]
     Active Substance: VASOPRESSIN
     Dosage: UNK
  13. NITRIC OXIDE [Concomitant]
     Active Substance: NITRIC OXIDE
     Dosage: UNK

REACTIONS (14)
  - Acute respiratory distress syndrome [Unknown]
  - Blood lactic acid decreased [Unknown]
  - Cardiac output increased [Unknown]
  - Electrocardiogram abnormal [Unknown]
  - Hyperlactacidaemia [Unknown]
  - Hypophagia [Unknown]
  - Hypotension [Unknown]
  - Hypoxia [Unknown]
  - Intentional overdose [Unknown]
  - Lactic acidosis [Unknown]
  - Tachycardia [Unknown]
  - Toxicity to various agents [Unknown]
  - Vitamin B1 decreased [Unknown]
  - Vitamin B1 increased [Unknown]
